FAERS Safety Report 8930098 (Version 2)
Quarter: 2013Q1

REPORT INFORMATION
  Report Type: Spontaneous
  Country: US (occurrence: US)
  Receive Date: 20121128
  Receipt Date: 20130301
  Transmission Date: 20140127
  Serious: Yes (Disabling, Other)
  Sender: FDA-Public Use
  Company Number: US-FRI-1000040452

PATIENT
  Sex: Female
  Weight: 72.5 kg

DRUGS (1)
  1. VIIBRYD [Suspect]
     Indication: MAJOR DEPRESSION
     Dosage: 10-40 MG
     Route: 048
     Dates: start: 20111031, end: 20120417

REACTIONS (8)
  - Bruxism [Recovering/Resolving]
  - Bruxism [Recovering/Resolving]
  - Temporomandibular joint syndrome [Recovering/Resolving]
  - Dermatillomania [Recovered/Resolved]
  - Insomnia [Recovered/Resolved]
  - Mania [Recovered/Resolved]
  - Weight increased [Recovered/Resolved]
  - Loss of libido [Recovered/Resolved]
